FAERS Safety Report 5258332-3 (Version None)
Quarter: 2007Q1

REPORT INFORMATION
  Report Type: 
  Country: None (occurrence: None)
  Receive Date: 20070306
  Receipt Date: 20070306
  Transmission Date: 20070707
  Serious: No
  Sender: FDA-Public Use
  Company Number: None

PATIENT
  Sex: Female

DRUGS (1)
  1. MICROGESTIN FE 1/20 [Suspect]
     Indication: CONTRACEPTION
     Dosage: 1/20 DAILY PO
     Route: 048
     Dates: start: 20061109

REACTIONS (2)
  - DUODENAL ULCER [None]
  - MIGRAINE [None]
